FAERS Safety Report 7554069-6 (Version None)
Quarter: 2011Q2

REPORT INFORMATION
  Report Type: 
  Country: None (occurrence: None)
  Receive Date: 20110614
  Receipt Date: 20110614
  Transmission Date: 20111010
  Serious: Yes (Other)
  Sender: FDA-Public Use
  Company Number: None

PATIENT
  Age: 46 Year
  Sex: Female
  Weight: 85.7298 kg

DRUGS (1)
  1. COPAXONE [Suspect]
     Indication: MULTIPLE SCLEROSIS
     Dosage: DAILY INJECTION DAILY SQ
     Route: 058
     Dates: start: 20090209, end: 20110605

REACTIONS (3)
  - SYNCOPE [None]
  - FLUSHING [None]
  - DYSPNOEA [None]
